FAERS Safety Report 8078601-1 (Version None)
Quarter: 2012Q1

REPORT INFORMATION
  Report Type: 
  Country: None (occurrence: None)
  Receive Date: 20120127
  Receipt Date: 20110103
  Transmission Date: 20120608
  Serious: No
  Sender: FDA-Public Use
  Company Number: US-ABBOTT-11P-163-0694971-00

PATIENT
  Age: 45 Year
  Sex: Male

DRUGS (2)
  1. HUMIRA [Suspect]
     Indication: PSORIASIS
     Dosage: 1 IN 2 WEEKS; INTERRUPTED
     Dates: start: 20100901
  2. CRESTOR [Concomitant]
     Indication: BLOOD CHOLESTEROL

REACTIONS (7)
  - PYREXIA [None]
  - PAIN [None]
  - NASOPHARYNGITIS [None]
  - DRUG DOSE OMISSION [None]
  - INFLUENZA [None]
  - NASAL CONGESTION [None]
  - SINUS HEADACHE [None]
